FAERS Safety Report 15572666 (Version 2)
Quarter: 2018Q4

REPORT INFORMATION
  Report Type: Spontaneous
  Country: DE (occurrence: DE)
  Receive Date: 20181031
  Receipt Date: 20181129
  Transmission Date: 20190205
  Serious: Yes (Death)
  Sender: FDA-Public Use
  Company Number: DE-009507513-1810DEU013362

PATIENT
  Age: 88 Year
  Sex: Male

DRUGS (1)
  1. FIDAXOMICIN [Suspect]
     Active Substance: FIDAXOMICIN
     Indication: PRODUCT USED FOR UNKNOWN INDICATION
     Dosage: UNK DOSE (3 TABLETS VIA GASTRIC TUBE), UNKNOWN FREQ.
     Route: 065

REACTIONS (2)
  - Incorrect route of product administration [Unknown]
  - Death [Fatal]

NARRATIVE: CASE EVENT DATE: 20181017
